FAERS Safety Report 5333767-9 (Version None)
Quarter: 2007Q2

REPORT INFORMATION
  Report Type: 
  Country: None (occurrence: None)
  Receive Date: 20070306
  Receipt Date: 20051214
  Transmission Date: 20071010
  Serious: Yes (Hospitalization)
  Sender: FDA-Public Use
  Company Number: A03200504215

PATIENT
  Age: 70 Year
  Sex: Male

DRUGS (2)
  1. PLAVIX [Suspect]
     Indication: CARDIAC OPERATION
     Dosage: 75 MG QD - ORAL
     Route: 048
     Dates: start: 20030301, end: 20051101
  2. PLAVIX [Suspect]
     Indication: POSTOPERATIVE CARE
     Dosage: 75 MG QD - ORAL
     Route: 048
     Dates: start: 20030301, end: 20051101

REACTIONS (1)
  - TRANSIENT ISCHAEMIC ATTACK [None]
